FAERS Safety Report 16172065 (Version 1)
Quarter: 2019Q2

REPORT INFORMATION
  Report Type: Spontaneous
  Country: FR (occurrence: FR)
  Receive Date: 20190409
  Receipt Date: 20190409
  Transmission Date: 20190711
  Serious: Yes (Other)
  Sender: FDA-Public Use
  Company Number: FR-PROVELL PHARMACEUTICALS-2065504

PATIENT
  Sex: Female

DRUGS (4)
  1. CARDENSIEL [Concomitant]
     Active Substance: BISOPROLOL FUMARATE
  2. EUTHYROX [Suspect]
     Active Substance: LEVOTHYROXINE SODIUM
     Indication: THYROID DISORDER
     Dates: start: 2017
  3. LERCAN [Concomitant]
     Active Substance: LERCANIDIPINE
  4. APROVEL [Concomitant]
     Active Substance: IRBESARTAN

REACTIONS (12)
  - Eczema [None]
  - Muscular weakness [None]
  - Vomiting [None]
  - Vertigo [None]
  - Diarrhoea [None]
  - Bradycardia [None]
  - Tachycardia [None]
  - Insomnia [None]
  - Muscle spasms [None]
  - Gait disturbance [None]
  - Visual impairment [None]
  - Headache [None]
